FAERS Safety Report 20652699 (Version 1)
Quarter: 2022Q1

REPORT INFORMATION
  Report Type: Spontaneous
  Country: RU (occurrence: RU)
  Receive Date: 20220330
  Receipt Date: 20220330
  Transmission Date: 20220424
  Serious: Yes (Other)
  Sender: FDA-Public Use
  Company Number: RU-ABBVIE-22K-251-4336623-00

PATIENT
  Age: 16 Year
  Sex: Female
  Weight: 61 kg

DRUGS (6)
  1. VALPROATE SODIUM [Suspect]
     Active Substance: VALPROATE SODIUM
     Indication: Epilepsy
     Route: 048
     Dates: start: 20201124, end: 20201124
  2. VALPROIC ACID [Suspect]
     Active Substance: VALPROIC ACID
     Indication: Epilepsy
     Route: 048
     Dates: start: 20201124, end: 20201124
  3. LAMICTAL [Suspect]
     Active Substance: LAMOTRIGINE
     Indication: Epilepsy
     Route: 048
     Dates: start: 20201123, end: 20201123
  4. VALPROATE SODIUM [Concomitant]
     Active Substance: VALPROATE SODIUM
     Indication: Product used for unknown indication
     Dates: end: 20201123
  5. VALPROIC ACID [Concomitant]
     Active Substance: VALPROIC ACID
     Indication: Product used for unknown indication
     Dates: end: 20201123
  6. LAMICTAL [Concomitant]
     Active Substance: LAMOTRIGINE
     Indication: Product used for unknown indication

REACTIONS (3)
  - Epilepsy with myoclonic-atonic seizures [Recovered/Resolved with Sequelae]
  - Nausea [Recovered/Resolved with Sequelae]
  - Vomiting [Recovered/Resolved with Sequelae]
